FAERS Safety Report 14602971 (Version 2)
Quarter: 2018Q2

REPORT INFORMATION
  Report Type: Spontaneous
  Country: US (occurrence: US)
  Receive Date: 20180306
  Receipt Date: 20180423
  Transmission Date: 20180711
  Serious: No
  Sender: FDA-Public Use
  Company Number: US-GLAXOSMITHKLINE-US2018036097

PATIENT
  Age: 76 Year
  Sex: Female

DRUGS (11)
  1. PLAVIX [Concomitant]
     Active Substance: CLOPIDOGREL BISULFATE
  2. SIMVASTATIN. [Concomitant]
     Active Substance: SIMVASTATIN
  3. METOPROLOL. [Concomitant]
     Active Substance: METOPROLOL
  4. LOSARTAN POTASSIUM. [Concomitant]
     Active Substance: LOSARTAN POTASSIUM
  5. LEXAPRO [Concomitant]
     Active Substance: ESCITALOPRAM OXALATE
  6. GLIPIZIDE. [Concomitant]
     Active Substance: GLIPIZIDE
  7. VENTOLIN [Concomitant]
     Active Substance: ALBUTEROL SULFATE
  8. FUROSEMIDE. [Concomitant]
     Active Substance: FUROSEMIDE
  9. BREO ELLIPTA [Suspect]
     Active Substance: FLUTICASONE FUROATE\VILANTEROL TRIFENATATE
     Indication: CHRONIC OBSTRUCTIVE PULMONARY DISEASE
     Dosage: 1 PUFF(S), QD
     Dates: start: 201711
  10. ALPRAZOLAM. [Concomitant]
     Active Substance: ALPRAZOLAM
  11. METFORMIN [Concomitant]
     Active Substance: METFORMIN HYDROCHLORIDE

REACTIONS (7)
  - Dyspnoea [Recovered/Resolved]
  - Chest discomfort [Recovered/Resolved]
  - Product quality issue [Unknown]
  - Blood glucose increased [Not Recovered/Not Resolved]
  - Cough [Not Recovered/Not Resolved]
  - Productive cough [Not Recovered/Not Resolved]
  - Feeling abnormal [Recovered/Resolved]

NARRATIVE: CASE EVENT DATE: 20180227
